FAERS Safety Report 12880752 (Version 1)
Quarter: 2016Q4

REPORT INFORMATION
  Report Type: Spontaneous
  Country: US (occurrence: US)
  Receive Date: 20161024
  Receipt Date: 20161024
  Transmission Date: 20170207
  Serious: Yes (Hospitalization, Other)
  Sender: FDA-Public Use
  Company Number: None

PATIENT
  Age: 27 Year
  Sex: Female

DRUGS (1)
  1. ALUM [Suspect]
     Active Substance: POTASSIUM ALUM
     Indication: VAGINAL DISORDER
     Dosage: VAGINAL TIGHTENING
     Route: 067

REACTIONS (2)
  - Vulvovaginal pain [None]
  - Vulvovaginal discomfort [None]

NARRATIVE: CASE EVENT DATE: 20161019
